FAERS Safety Report 19907157 (Version 1)
Quarter: 2021Q4

REPORT INFORMATION
  Report Type: Spontaneous
  Country: US (occurrence: US)
  Receive Date: 20211001
  Receipt Date: 20211001
  Transmission Date: 20220303
  Serious: No
  Sender: FDA-Public Use
  Company Number: US-009507513-2109USA007616

PATIENT
  Sex: Male

DRUGS (2)
  1. TEMODAR [Suspect]
     Active Substance: TEMOZOLOMIDE
     Indication: Central nervous system lymphoma
     Dosage: UNK
     Route: 048
  2. METHOTREXATE;PROCARBAZINE;RITUXIMAB;VINCRISTINE [Concomitant]
     Indication: Central nervous system lymphoma
     Dosage: UNK

REACTIONS (1)
  - Product use in unapproved indication [Unknown]
